FAERS Safety Report 15584771 (Version 1)
Quarter: 2018Q4

REPORT INFORMATION
  Report Type: Spontaneous
  Country: US (occurrence: US)
  Receive Date: 20181105
  Receipt Date: 20181105
  Transmission Date: 20190205
  Serious: Yes (Other)
  Sender: FDA-Public Use
  Company Number: None

PATIENT
  Age: 36 Year
  Sex: Female
  Weight: 72 kg

DRUGS (1)
  1. EMEND [Suspect]
     Active Substance: APREPITANT
     Indication: VOMITING
     Dosage: ?          OTHER FREQUENCY:ONCE;?
     Route: 042
     Dates: start: 20181102, end: 20181102

REACTIONS (10)
  - Flushing [None]
  - Nausea [None]
  - Infusion related reaction [None]
  - Chest pain [None]
  - Drug hypersensitivity [None]
  - Visual impairment [None]
  - Defaecation urgency [None]
  - Dyspnoea [None]
  - Abdominal pain [None]
  - Dizziness [None]

NARRATIVE: CASE EVENT DATE: 20181102
